FAERS Safety Report 21715843 (Version 1)
Quarter: 2022Q4

REPORT INFORMATION
  Report Type: Report from Study
  Country: US (occurrence: US)
  Receive Date: 20221212
  Receipt Date: 20221212
  Transmission Date: 20230112
  Serious: No
  Sender: FDA-Public Use
  Company Number: US-ABBVIE-4232474

PATIENT
  Sex: Male

DRUGS (23)
  1. VENCLEXTA [Suspect]
     Active Substance: VENETOCLAX
     Indication: Plasma cell myeloma
     Dosage: TAKE WITH A MEAL AND WATER AT THE SAME TIME EACH DAY. SWALLOW WHOLE, DO NOT CHEW, CRUSH OR BREAK?...
     Route: 048
     Dates: start: 20221107
  2. BENADRYL [Concomitant]
     Active Substance: DIPHENHYDRAMINE HYDROCHLORIDE
     Indication: Product used for unknown indication
     Route: 048
  3. PROVENTIL HFA [Concomitant]
     Active Substance: ALBUTEROL SULFATE
     Indication: Product used for unknown indication
     Dosage: INHALE 2 PUFF?STRENGTH: 90 MICROGRAM
     Route: 055
     Dates: start: 20191014
  4. GLYCOLAX [Concomitant]
     Active Substance: POLYETHYLENE GLYCOL 3350
     Indication: Product used for unknown indication
     Dosage: STRENGTH: 17 G
     Route: 048
  5. ZOFRAN [Concomitant]
     Active Substance: ONDANSETRON HYDROCHLORIDE
     Indication: Product used for unknown indication
     Dosage: TIME INTERVAL: 0.33333333 DAYS: STRENGTH: 4 MG
     Route: 048
     Dates: start: 20201028
  6. ASPIRIN [Concomitant]
     Active Substance: ASPIRIN
     Indication: Product used for unknown indication
     Dosage: STRENGTH: 81 MG
     Route: 048
  7. PRALUENT [Concomitant]
     Active Substance: ALIROCUMAB
     Indication: Product used for unknown indication
     Dosage: STRENGTH: 75 MG
     Dates: start: 20200506
  8. CALCIUM CITRATE\VITAMIN D [Concomitant]
     Active Substance: CALCIUM CITRATE\VITAMIN D
     Indication: Product used for unknown indication
     Dosage: TAKE 1 TABLET BY MOUTH DAILY WITH BREAKFAST. TAKE GUMMIES?STRENGTH: 200 UNITS
     Route: 048
  9. LIPITOR [Concomitant]
     Active Substance: ATORVASTATIN CALCIUM
     Indication: Product used for unknown indication
     Dosage: STRENGTH: 10 MG
     Route: 048
     Dates: start: 20220318
  10. COREG [Concomitant]
     Active Substance: CARVEDILOL
     Indication: Product used for unknown indication
     Dosage: TAKE 1 TABLET (3.125MG TABLET ) BY MOUTH 2 TIMES A DAY WITH MEALS?STRENGTH: 3.125 MG
     Route: 048
     Dates: start: 20220211
  11. ZYLOPRIM [Concomitant]
     Active Substance: ALLOPURINOL
     Indication: Product used for unknown indication
     Dosage: STRENGTH: 300 MG
     Route: 048
     Dates: start: 20221107
  12. VITAMIN D3 [Concomitant]
     Active Substance: CHOLECALCIFEROL
     Indication: Product used for unknown indication
     Dosage: STRENGTH: 100 UNITS
     Route: 048
  13. VITAMIN B12 [Concomitant]
     Active Substance: CYANOCOBALAMIN
     Indication: Product used for unknown indication
     Dosage: STRENGTH;100 UG
     Route: 048
  14. PEPCID [Concomitant]
     Active Substance: FAMOTIDINE
     Indication: Product used for unknown indication
     Dosage: STRENGTH: 20 MG
     Route: 048
     Dates: start: 20220318
  15. TYLENOL [Concomitant]
     Active Substance: ACETAMINOPHEN
     Indication: Product used for unknown indication
     Dosage: TAKE 500MG BY MOUTH EVERY 6 HOURS AS NEEDED FOR PAIN?STRENGTH:500 MG
     Route: 048
  16. MELATONIN [Concomitant]
     Active Substance: MELATONIN
     Indication: Product used for unknown indication
     Dosage: STRENGTH: 3 MG
     Route: 048
  17. REVLIMID [Concomitant]
     Active Substance: LENALIDOMIDE
     Indication: Product used for unknown indication
     Dosage: STRENGTH: 5 MG
     Route: 048
     Dates: start: 20221122
  18. LIDOCAINE [Concomitant]
     Active Substance: LIDOCAINE
     Indication: Product used for unknown indication
     Dosage: PLACE 1 PATCH ON THE SKIN . 4% ADHESIVE PATCH
     Route: 062
     Dates: start: 20190618
  19. ZOVIRAX [Concomitant]
     Active Substance: ACYCLOVIR
     Indication: Product used for unknown indication
     Dosage: TAKE 1 TABLET (400MG TOTAL) BY MOUTH 2 TIMES A DAY?STRENGTH: 400 MG
     Route: 048
     Dates: start: 20220805
  20. COZAAR [Concomitant]
     Active Substance: LOSARTAN POTASSIUM
     Indication: Product used for unknown indication
     Dosage: STRENGTH: 500 MG
     Route: 048
     Dates: start: 20220318, end: 20220805
  21. DECADRON [Concomitant]
     Active Substance: DEXAMETHASONE
     Indication: Product used for unknown indication
     Dosage: STRENGTH: 4 MG
     Route: 048
     Dates: start: 20220610
  22. VOLTAREN [Concomitant]
     Active Substance: DICLOFENAC SODIUM
     Indication: Product used for unknown indication
     Dosage: STRENGTH: 1 %
     Route: 061
     Dates: start: 20190618
  23. ZOLOFT [Concomitant]
     Active Substance: SERTRALINE HYDROCHLORIDE
     Indication: Product used for unknown indication
     Dosage: STRENGTH: 100 MG
     Route: 048
     Dates: start: 20220211

REACTIONS (1)
  - Off label use [Unknown]
